FAERS Safety Report 9541906 (Version 1)
Quarter: 2013Q2

REPORT INFORMATION
  Report Type: Spontaneous
  Country: US (occurrence: None)
  Receive Date: 20130524
  Receipt Date: 20130524
  Transmission Date: 20140414
  Serious: No
  Sender: FDA-Public Use
  Company Number: PHEH2013US001406

PATIENT
  Age: 43 Year
  Sex: Female

DRUGS (1)
  1. GILENYA (FINGOLIMOD) CAPSULE [Suspect]
     Route: 048
     Dates: start: 20120801, end: 20120901

REACTIONS (3)
  - Heart rate increased [None]
  - Visual impairment [None]
  - Vision blurred [None]
